FAERS Safety Report 5370447-8 (Version None)
Quarter: 2007Q2

REPORT INFORMATION
  Report Type: 
  Country: None (occurrence: None)
  Receive Date: 20070625
  Receipt Date: 20070625
  Transmission Date: 20071010
  Serious: Yes (Other)
  Sender: FDA-Public Use
  Company Number: None

PATIENT
  Age: 48 Year
  Sex: Male
  Weight: 115.6672 kg

DRUGS (1)
  1. TOPROL-XL [Suspect]
     Indication: HYPERTENSION
     Dosage: 150MG DAILY PO
     Route: 048
     Dates: start: 20060606, end: 20070625

REACTIONS (6)
  - ABNORMAL SENSATION IN EYE [None]
  - EAR DISCOMFORT [None]
  - ERYTHEMA [None]
  - FEELING ABNORMAL [None]
  - HEADACHE [None]
  - PHARMACEUTICAL PRODUCT COMPLAINT [None]
